FAERS Safety Report 5038873-4 (Version None)
Quarter: 2006Q2

REPORT INFORMATION
  Report Type: 
  Country: None (occurrence: None)
  Receive Date: 20060623
  Receipt Date: 20060612
  Transmission Date: 20061013
  Serious: Yes (Death)
  Sender: FDA-Public Use
  Company Number: 0601542US

PATIENT
  Age: 85 Year
  Sex: Male

DRUGS (2)
  1. LUMIGAN [Suspect]
     Indication: GLAUCOMA
     Dosage: 1 GTT, QPM, OPHTHALMIC
     Route: 047
     Dates: start: 20050927, end: 20060501
  2. XALATAN [Suspect]
     Indication: GLAUCOMA
     Dosage: 1 GTT, QPM, OPHTHALMIC
     Route: 047
     Dates: start: 20050927, end: 20060110

REACTIONS (1)
  - DEATH [None]
